FAERS Safety Report 8789607 (Version 1)
Quarter: 2012Q4

REPORT INFORMATION
  Report Type: Spontaneous
  Country: US (occurrence: None)
  Receive Date: 20120905
  Receipt Date: 20120905
  Transmission Date: 20130627
  Serious: Yes (Other)
  Sender: FDA-Public Use
  Company Number: EUS-2012-00708

PATIENT

DRUGS (3)
  1. ASPARAGINASE [Suspect]
     Indication: NATURAL KILLER-CELL LYMPHOBLASTIC LYMPHOMA
  2. VINCRISTINE (VINCRISTINE) [Concomitant]
  3. PREDNISONE (PREDNISONE) [Concomitant]

REACTIONS (1)
  - Leukopenia [None]
